FAERS Safety Report 23615661 (Version 1)
Quarter: 2024Q1

REPORT INFORMATION
  Report Type: Spontaneous
  Country: JP (occurrence: None)
  Receive Date: 20240311
  Receipt Date: 20240311
  Transmission Date: 20240410
  Serious: Yes (Life-Threatening, Other)
  Sender: FDA-Public Use
  Company Number: JP-ADIENNEP-2024AD000240

PATIENT
  Sex: Male

DRUGS (3)
  1. THIOTEPA [Suspect]
     Active Substance: THIOTEPA
     Indication: Autologous haematopoietic stem cell transplant
     Dosage: 5 MG PER KG ON DAYS -4 TO -3
     Dates: start: 202008
  2. BUSULFAN [Suspect]
     Active Substance: BUSULFAN
     Indication: Autologous haematopoietic stem cell transplant
     Dosage: 3.2 MG PER KG ON DAYS -8 TO -5
     Dates: start: 202008
  3. GRANULOCYTE COLONY-STIMULATING FACTOR NOS [Suspect]
     Active Substance: GRANULOCYTE COLONY-STIMULATING FACTOR NOS
     Dosage: 600 UG PER BODY DAILY FROM DAY 11

REACTIONS (4)
  - Febrile neutropenia [Unknown]
  - Septic shock [Unknown]
  - Staphylococcal infection [Unknown]
  - Klebsiella infection [Unknown]
